FAERS Safety Report 9626505 (Version 1)
Quarter: 2013Q4

REPORT INFORMATION
  Report Type: Spontaneous
  Country: US (occurrence: None)
  Receive Date: 20131015
  Receipt Date: 20131015
  Transmission Date: 20140711
  Serious: No
  Sender: FDA-Public Use
  Company Number: None

PATIENT
  Age: 64 Year
  Sex: Female
  Weight: 55.79 kg

DRUGS (2)
  1. MELOXICAM 15MGM UNICHEM PH [Suspect]
     Indication: ARTHRALGIA
     Route: 048
  2. TRAMADOL 50MGM AMNEAL PHA [Suspect]
     Indication: PAIN
     Route: 048

REACTIONS (6)
  - Nausea [None]
  - Dizziness [None]
  - Abdominal discomfort [None]
  - Dry mouth [None]
  - Somnolence [None]
  - Fatigue [None]
